FAERS Safety Report 18327557 (Version 2)
Quarter: 2020Q4

REPORT INFORMATION
  Report Type: Spontaneous
  Country: US (occurrence: US)
  Receive Date: 20200930
  Receipt Date: 20201029
  Transmission Date: 20210113
  Serious: No
  Sender: FDA-Public Use
  Company Number: US-009507513-2009USA008145

PATIENT
  Age: 56 Year
  Sex: Male
  Weight: 107.05 kg

DRUGS (1)
  1. PRINIVIL [Suspect]
     Active Substance: LISINOPRIL
     Dosage: REPORTED AS ^30MG^
     Dates: end: 20121007

REACTIONS (1)
  - Cough [Recovered/Resolved]

NARRATIVE: CASE EVENT DATE: 201210
